FAERS Safety Report 5812402-7 (Version None)
Quarter: 2008Q3

REPORT INFORMATION
  Report Type: 
  Country: None (occurrence: None)
  Receive Date: 20080716
  Receipt Date: 20080704
  Transmission Date: 20090109
  Serious: Yes (Other)
  Sender: FDA-Public Use
  Company Number: FR-PFIZER INC-2008057137

PATIENT
  Sex: Female

DRUGS (2)
  1. LYRICA [Suspect]
  2. CORTISONE ACETATE [Concomitant]

REACTIONS (1)
  - HEPATITIS [None]
